FAERS Safety Report 8943297 (Version 3)
Quarter: 2012Q4

REPORT INFORMATION
  Report Type: 
  Country: US (occurrence: US)
  Receive Date: 20121203
  Receipt Date: 20121211
  Transmission Date: 20130627
  Serious: Yes (Hospitalization, Other)
  Sender: FDA-Public Use
  Company Number: US-PFIZER INC-2012302582

PATIENT
  Sex: Female

DRUGS (2)
  1. LYRICA [Suspect]
     Indication: FIBROMYALGIA
     Dosage: UNK
     Dates: end: 201211
  2. ZOLOFT [Suspect]
     Dosage: UNK

REACTIONS (7)
  - Back disorder [Unknown]
  - Back pain [Unknown]
  - Intervertebral disc disorder [Unknown]
  - Gait disturbance [Unknown]
  - Withdrawal syndrome [Unknown]
  - Impaired work ability [Unknown]
  - Paraesthesia [Unknown]
